FAERS Safety Report 16118941 (Version 7)
Quarter: 2020Q1

REPORT INFORMATION
  Report Type: Spontaneous
  Country: US (occurrence: US)
  Receive Date: 20190326
  Receipt Date: 20200306
  Transmission Date: 20200409
  Serious: Yes (Hospitalization)
  Sender: FDA-Public Use
  Company Number: US-PFIZER INC-2018079170

PATIENT
  Age: 87 Year
  Sex: Female
  Weight: 79.37 kg

DRUGS (3)
  1. GENOTROPIN MQ [Suspect]
     Active Substance: SOMATROPIN
     Indication: GROWTH HORMONE DEFICIENCY
     Dosage: 0.8 MG, DAILY
     Dates: start: 20011227
  2. GENOTROPIN MQ [Suspect]
     Active Substance: SOMATROPIN
     Dosage: UNK, 1X/DAY
     Dates: end: 20200215
  3. GENOTROPIN MQ [Suspect]
     Active Substance: SOMATROPIN
     Dosage: UNK, ALTERNATE DAY(EVERY OTHER DAY)
     Dates: start: 20191213, end: 20200215

REACTIONS (6)
  - Pre-existing condition improved [Unknown]
  - Fatigue [Not Recovered/Not Resolved]
  - Therapeutic response unexpected [Unknown]
  - Intentional product misuse [Not Recovered/Not Resolved]
  - Hypoacusis [Unknown]
  - Weight increased [Unknown]

NARRATIVE: CASE EVENT DATE: 20191213
